FAERS Safety Report 6592847-0 (Version None)
Quarter: 2010Q1

REPORT INFORMATION
  Report Type: 
  Country: None (occurrence: None)
  Receive Date: 20100212
  Receipt Date: 20100204
  Transmission Date: 20100710
  Serious: Yes (Other)
  Sender: FDA-Public Use
  Company Number: 499576

PATIENT
  Age: 50 Year
  Sex: Male

DRUGS (3)
  1. CALCIUM FOLINATE [Suspect]
     Indication: RECTAL CANCER
     Dosage: NOT REPORTED
  2. FLUOROURACIL [Suspect]
     Indication: RECTAL CANCER
     Dosage: NOT REPORTED
  3. OXALIPLATIN [Suspect]
     Indication: RECTAL CANCER
     Dosage: NOT REPORTED

REACTIONS (2)
  - DISEASE RECURRENCE [None]
  - HEPATITIS B [None]
